FAERS Safety Report 9056857 (Version 1)
Quarter: 2013Q1

REPORT INFORMATION
  Report Type: Report from Study
  Country: JP (occurrence: JP)
  Receive Date: 20130201
  Receipt Date: 20130201
  Transmission Date: 20140127
  Serious: Yes (Other)
  Sender: FDA-Public Use
  Company Number: JP-GLAXOSMITHKLINE-B0860713A

PATIENT
  Age: 54 None
  Sex: Female
  Weight: 70 kg

DRUGS (9)
  1. TYKERB [Suspect]
     Indication: BREAST CANCER
     Route: 048
     Dates: start: 20110120, end: 20110210
  2. TYKERB [Suspect]
     Indication: BREAST CANCER
     Route: 048
     Dates: start: 20110303, end: 20110704
  3. TYKERB [Suspect]
     Indication: BREAST CANCER
     Route: 048
     Dates: start: 20110719, end: 20111101
  4. TYKERB [Suspect]
     Indication: BREAST CANCER
     Route: 048
     Dates: start: 20111124
  5. XELODA [Suspect]
     Route: 048
     Dates: start: 20110120, end: 20110203
  6. XELODA [Suspect]
     Route: 048
     Dates: start: 20110303, end: 20110310
  7. XELODA [Suspect]
     Route: 048
     Dates: start: 20110311, end: 20110520
  8. XELODA [Suspect]
     Route: 048
     Dates: start: 20111101, end: 20111215
  9. GLYCYRON [Concomitant]
     Indication: ALANINE AMINOTRANSFERASE INCREASED
     Route: 048

REACTIONS (5)
  - Pneumonia [Recovered/Resolved]
  - Acne [Recovered/Resolved]
  - Paronychia [Recovered/Resolved]
  - Dermatitis acneiform [Recovering/Resolving]
  - Palmar-plantar erythrodysaesthesia syndrome [Recovering/Resolving]
